FAERS Safety Report 7344600-8 (Version None)
Quarter: 2011Q1

REPORT INFORMATION
  Report Type: 
  Country: None (occurrence: None)
  Receive Date: 20110310
  Receipt Date: 20110211
  Transmission Date: 20110831
  Serious: No
  Sender: FDA-Public Use
  Company Number: US-B.I. PHARMACEUTICALS,INC./RIDGEFIELD-2010-BP-15384BP

PATIENT
  Age: 87 Year
  Sex: Female

DRUGS (8)
  1. DIOVAN [Concomitant]
     Route: 048
  2. PRADAXA [Suspect]
     Indication: ATRIAL FIBRILLATION
     Dosage: 300 MG
     Route: 048
     Dates: start: 20101218
  3. XANAX [Concomitant]
     Dosage: 0.5 MG
     Route: 048
  4. METOPROLOL TARTRATE [Concomitant]
     Route: 048
  5. AMIODARONE [Concomitant]
     Dosage: 200 MG
     Route: 048
  6. NEXIUM [Concomitant]
     Indication: ACIDOSIS
     Route: 048
     Dates: start: 20080101
  7. PREVACID [Concomitant]
     Dosage: 30 MG
     Route: 048
  8. SENNA-S [Concomitant]
     Route: 048

REACTIONS (3)
  - NAUSEA [None]
  - ABDOMINAL DISTENSION [None]
  - ABDOMINAL PAIN UPPER [None]
